FAERS Safety Report 12836790 (Version 1)
Quarter: 2016Q4

REPORT INFORMATION
  Report Type: Other
  Country: US (occurrence: US)
  Receive Date: 20161011
  Receipt Date: 20161011
  Transmission Date: 20170207
  Serious: No
  Sender: FDA-Public Use
  Company Number: US-ORIT LABORATORIES LLC-1058221

PATIENT
  Age: 71 Year
  Sex: Female
  Weight: 65.91 kg

DRUGS (1)
  1. ERGOCALCIFEROL. [Suspect]
     Active Substance: ERGOCALCIFEROL
     Indication: SCIATICA
     Route: 048
     Dates: start: 20160708, end: 20160715

REACTIONS (4)
  - Musculoskeletal stiffness [Unknown]
  - Skin discolouration [Recovered/Resolved]
  - Lethargy [Unknown]
  - Drug hypersensitivity [Unknown]

NARRATIVE: CASE EVENT DATE: 20160708
